FAERS Safety Report 14491584 (Version 1)
Quarter: 2018Q1

REPORT INFORMATION
  Report Type: Spontaneous
  Country: US (occurrence: US)
  Receive Date: 20180206
  Receipt Date: 20180206
  Transmission Date: 20180509
  Serious: No
  Sender: FDA-Public Use
  Company Number: US-GLAXOSMITHKLINE-US2018016798

PATIENT

DRUGS (1)
  1. LAMISIL AT CONTINUOUS SPRAY [Suspect]
     Active Substance: TERBINAFINE HYDROCHLORIDE
     Indication: PRURITUS
     Dosage: UNK

REACTIONS (2)
  - Adverse reaction [Unknown]
  - Application site burn [Unknown]
